FAERS Safety Report 8505917 (Version 2)
Quarter: 2012Q4

REPORT INFORMATION
  Report Type: 
  Country: US (occurrence: US)
  Receive Date: 20120412
  Receipt Date: 20121105
  Transmission Date: 20130627
  Serious: Yes (Other)
  Sender: FDA-Public Use
  Company Number: US-ASTRAZENECA-2010SE16988

PATIENT
  Age: 71 Year
  Sex: Female

DRUGS (3)
  1. PULMICORT RESPULES [Suspect]
     Route: 055
  2. SYMBICORT PMDI [Suspect]
     Dosage: Dosage and frequency unknown.
     Route: 055
  3. NEXIUM [Suspect]
     Route: 048

REACTIONS (8)
  - Blindness unilateral [Unknown]
  - Adverse reaction [Unknown]
  - Sinus disorder [Unknown]
  - Malaise [Unknown]
  - Nasopharyngitis [Unknown]
  - Memory impairment [Unknown]
  - Drug name confusion [Unknown]
  - Drug dose omission [Unknown]
